FAERS Safety Report 9702721 (Version 2)
Quarter: 2014Q1

REPORT INFORMATION
  Report Type: Spontaneous
  Country: NL (occurrence: NL)
  Receive Date: 20131121
  Receipt Date: 20140313
  Transmission Date: 20141002
  Serious: Yes (Other)
  Sender: FDA-Public Use
  Company Number: NL-B.I. PHARMACEUTICALS,INC./RIDGEFIELD-2013-BI-37681NL

PATIENT
  Sex: Female

DRUGS (8)
  1. SIFROL [Suspect]
     Indication: PARKINSON^S DISEASE
     Route: 048
     Dates: start: 200202, end: 201207
  2. SIFROL [Suspect]
     Route: 065
     Dates: start: 200205, end: 201207
  3. SIFROL [Suspect]
     Dosage: DOSE PER APPLICATION: 3 + 2X0.375 MVA 2 PIECES
     Route: 048
     Dates: end: 2012
  4. SINEMET [Concomitant]
     Route: 065
  5. STALEVO [Concomitant]
     Route: 065
  6. ARTANE [Concomitant]
     Route: 065
  7. SYMMETREL [Concomitant]
     Route: 065
  8. SINEMET CR [Concomitant]
     Route: 065

REACTIONS (5)
  - Pathological gambling [Recovered/Resolved]
  - Pathological gambling [Unknown]
  - Impulse-control disorder [Unknown]
  - Anhedonia [Unknown]
  - Obsessive-compulsive disorder [Recovered/Resolved]
